FAERS Safety Report 8802790 (Version 2)
Quarter: 2015Q1

REPORT INFORMATION
  Report Type: Report from Study
  Country: US (occurrence: US)
  Receive Date: 20120921
  Receipt Date: 20150302
  Transmission Date: 20150721
  Serious: Yes (Death)
  Sender: FDA-Public Use
  Company Number: US-ROCHE-1092925

PATIENT
  Age: 63 Year
  Sex: Male
  Weight: 92.53 kg

DRUGS (9)
  1. AVASTIN [Suspect]
     Active Substance: BEVACIZUMAB
     Indication: RENAL CANCER
     Route: 042
     Dates: start: 20040329
  2. AVASTIN [Suspect]
     Active Substance: BEVACIZUMAB
     Route: 042
     Dates: start: 20040412
  3. DECADRON [Concomitant]
     Active Substance: DEXAMETHASONE
     Dosage: 10 (UNIT NOT REPORTED)
     Route: 042
  4. TYLENOL [Concomitant]
     Active Substance: ACETAMINOPHEN
  5. ALOXI [Concomitant]
     Active Substance: PALONOSETRON HYDROCHLORIDE
     Dosage: 0.5 (UNIT NOT REPORTED)
     Route: 042
  6. ALOXI [Concomitant]
     Active Substance: PALONOSETRON HYDROCHLORIDE
     Dosage: 0.25 (UNIT NOT REPORTED)
     Route: 042
  7. DECADRON [Concomitant]
     Active Substance: DEXAMETHASONE
     Route: 042
  8. GRANISETRON [Concomitant]
     Active Substance: GRANISETRON
  9. AMBIEN [Concomitant]
     Active Substance: ZOLPIDEM TARTRATE
     Route: 048

REACTIONS (13)
  - Death [Fatal]
  - Disorientation [Unknown]
  - Fatigue [Unknown]
  - Amnesia [Unknown]
  - Cachexia [Unknown]
  - Insomnia [Unknown]
  - Headache [Unknown]
  - Asthenia [Unknown]
  - Confusional state [Unknown]
  - Slow speech [Unknown]
  - Pain in extremity [Unknown]
  - Night sweats [Unknown]
  - Feeling abnormal [Unknown]

NARRATIVE: CASE EVENT DATE: 20040605
